FAERS Safety Report 19472049 (Version 2)
Quarter: 2025Q4

REPORT INFORMATION
  Report Type: Spontaneous
  Country: US (occurrence: None)
  Receive Date: 20210629
  Receipt Date: 20251216
  Transmission Date: 20260117
  Serious: Yes (Hospitalization, Other)
  Sender: AUROBINDO
  Company Number: US-MLMSERVICE-20210607-2934698-1

PATIENT
  Age: 76 Year
  Sex: Female
  Weight: 123 kg

DRUGS (18)
  1. METFORMIN [Suspect]
     Active Substance: METFORMIN HYDROCHLORIDE
     Indication: Type 2 diabetes mellitus
     Dosage: UNK
     Route: 065
  2. Spironolactone1 [Concomitant]
     Indication: Cardiac failure
     Dosage: UNK
     Route: 065
  3. Lorazepam1 [Concomitant]
     Indication: Product used for unknown indication
     Dosage: UNK
     Route: 065
  4. Cyclobenzaprine1 [Concomitant]
     Indication: Product used for unknown indication
     Dosage: UNK
     Route: 065
  5. Atorvastatin1 [Concomitant]
     Indication: Atrial fibrillation
     Dosage: UNK
     Route: 065
  6. Warfarin1 [Concomitant]
     Indication: Cardiac failure
     Dosage: UNK
     Route: 065
  7. Loratadine1 [Concomitant]
     Indication: Product used for unknown indication
     Dosage: UNK
     Route: 065
  8. Metolazone1 [Concomitant]
     Indication: Cardiac failure
     Dosage: UNK
     Route: 061
  9. Fluticasone1 [Concomitant]
     Indication: Product used for unknown indication
     Dosage: UNK
     Route: 065
  10. ALLOPURINOL [Concomitant]
     Active Substance: ALLOPURINOL
     Indication: Product used for unknown indication
     Dosage: UNK
     Route: 065
  11. Glipizide1 [Concomitant]
     Indication: Type 2 diabetes mellitus
     Dosage: UNK
     Route: 065
  12. Amiodarone1 [Concomitant]
     Indication: Hypertension
     Dosage: UNK
     Route: 065
  13. Torsemide1 [Concomitant]
     Indication: Cardiac failure
     Dosage: UNK
     Route: 065
  14. Acetylsalicylic acid1 [Concomitant]
     Indication: Cardiac failure
     Dosage: UNK
     Route: 065
  15. Metoprolol1 [Concomitant]
     Indication: Hypertension
     Dosage: UNK
     Route: 065
  16. Sertraline1 [Concomitant]
     Indication: Product used for unknown indication
     Dosage: UNK
     Route: 065
  17. Zolpidem1 [Concomitant]
     Indication: Obstructive sleep apnoea syndrome
     Dosage: UNK
     Route: 065
  18. Enoxaparin1 [Concomitant]
     Indication: Product used for unknown indication
     Dosage: UNK
     Route: 065

REACTIONS (4)
  - Respiratory acidosis [Recovered/Resolved]
  - Metabolic acidosis [Recovered/Resolved]
  - Lactic acidosis [Recovered/Resolved]
  - Toxicity to various agents [Recovered/Resolved]
